FAERS Safety Report 11689068 (Version 1)
Quarter: 2015Q4

REPORT INFORMATION
  Report Type: Spontaneous
  Country: US (occurrence: US)
  Receive Date: 20151102
  Receipt Date: 20151102
  Transmission Date: 20160304
  Serious: No
  Sender: FDA-Public Use
  Company Number: US-BRISTOL-MYERS SQUIBB COMPANY-BMS-2015-073845

PATIENT
  Sex: Male
  Weight: 94.33 kg

DRUGS (1)
  1. ABILIFY [Suspect]
     Active Substance: ARIPIPRAZOLE
     Indication: PRODUCT USED FOR UNKNOWN INDICATION
     Dosage: 2 MG, QD
     Route: 065
     Dates: start: 2015

REACTIONS (6)
  - Wrong technique in product usage process [Unknown]
  - Weight increased [Unknown]
  - Insomnia [Unknown]
  - Sleep disorder [Unknown]
  - Restlessness [Unknown]
  - Off label use [Unknown]

NARRATIVE: CASE EVENT DATE: 2015
